FAERS Safety Report 5067773-9 (Version None)
Quarter: 2006Q3

REPORT INFORMATION
  Report Type: 
  Country: None (occurrence: None)
  Receive Date: 20060802
  Receipt Date: 20060727
  Transmission Date: 20061208
  Serious: Yes (Other)
  Sender: FDA-Public Use
  Company Number: US-GLAXOSMITHKLINE-A0613808A

PATIENT
  Sex: Female

DRUGS (8)
  1. WELLBUTRIN [Suspect]
     Indication: DEPRESSION
     Dosage: 300MG PER DAY
     Route: 048
  2. WELLBUTRIN [Suspect]
     Route: 048
  3. ALPRAZOLAM [Suspect]
     Indication: CRYING
     Dosage: 2MG FOUR TIMES PER DAY
     Route: 048
     Dates: start: 20060718
  4. XANAX [Concomitant]
  5. EFFEXOR [Concomitant]
  6. ATIVAN [Concomitant]
  7. NABUMETONE [Concomitant]
  8. UNSPECIFIED MEDICATIONS [Concomitant]

REACTIONS (7)
  - CRYING [None]
  - DELUSION [None]
  - DRUG INEFFECTIVE [None]
  - ENERGY INCREASED [None]
  - HALLUCINATION [None]
  - HOSTILITY [None]
  - SUBDURAL HAEMATOMA [None]
